FAERS Safety Report 23033105 (Version 1)
Quarter: 2023Q4

REPORT INFORMATION
  Report Type: Spontaneous
  Country: US (occurrence: US)
  Receive Date: 20231005
  Receipt Date: 20231005
  Transmission Date: 20240109
  Serious: No
  Sender: FDA-Public Use
  Company Number: US-BAYER-2023A140131

PATIENT
  Age: 15 Year
  Sex: Female

DRUGS (1)
  1. MIRALAX [Suspect]
     Active Substance: POLYETHYLENE GLYCOL 3350
     Indication: Gastrointestinal disorder
     Dosage: ONE DOSE DAILY
     Route: 048
     Dates: start: 202207

REACTIONS (2)
  - Hyperhidrosis [Unknown]
  - Product use issue [None]

NARRATIVE: CASE EVENT DATE: 20230801
